FAERS Safety Report 21024396 (Version 3)
Quarter: 2023Q4

REPORT INFORMATION
  Report Type: Spontaneous
  Country: US (occurrence: US)
  Receive Date: 20220629
  Receipt Date: 20231030
  Transmission Date: 20240110
  Serious: No
  Sender: FDA-Public Use
  Company Number: US-KYOWAKIRIN-2022BKK009734

PATIENT

DRUGS (1)
  1. NOURIANZ [Suspect]
     Active Substance: ISTRADEFYLLINE
     Indication: Parkinson^s disease
     Dosage: 20 MG, QD
     Route: 048
     Dates: start: 20220122

REACTIONS (5)
  - Condition aggravated [Not Recovered/Not Resolved]
  - Depressed mood [Unknown]
  - Constipation [Unknown]
  - Economic problem [Not Recovered/Not Resolved]
  - Product dose omission issue [Not Recovered/Not Resolved]
